FAERS Safety Report 7896626 (Version 2)
Quarter: 2013Q1

REPORT INFORMATION
  Report Type: Report from Study
  Country: US (occurrence: US)
  Receive Date: 20110413
  Receipt Date: 20130129
  Transmission Date: 20140127
  Serious: Yes (Other)
  Sender: FDA-Public Use
  Company Number: US-RB-011534-10

PATIENT
  Age: 35 None
  Sex: Female

DRUGS (3)
  1. SUBOXONE TABLET [Suspect]
     Route: 060
     Dates: start: 2010, end: 2010
  2. SUBOXONE TABLET [Suspect]
     Indication: DRUG DEPENDENCE
     Dosage: 1 - 2 MG DAILY
     Route: 060
     Dates: start: 2010, end: 20110109
  3. SUBUTEX [Suspect]
     Indication: DRUG DEPENDENCE
     Route: 060
     Dates: start: 2010, end: 2010

REACTIONS (5)
  - Exposure during pregnancy [Recovered/Resolved]
  - Vomiting [Recovered/Resolved]
  - Premature labour [Recovered/Resolved]
  - Premature delivery [Recovered/Resolved]
  - Drug dependence [Recovered/Resolved]
